FAERS Safety Report 6793843-0 (Version None)
Quarter: 2010Q2

REPORT INFORMATION
  Report Type: 
  Country: None (occurrence: None)
  Receive Date: 20100624
  Receipt Date: 20090311
  Transmission Date: 20101027
  Serious: No
  Sender: FDA-Public Use
  Company Number: US-PFIZER INC-2009168792

PATIENT
  Sex: Female
  Weight: 91.6 kg

DRUGS (2)
  1. GEODON [Suspect]
     Dosage: 60 MG, 2X/DAY
  2. ABILIFY [Concomitant]
     Dosage: 25 MG, UNK

REACTIONS (3)
  - ASTHENIA [None]
  - DIZZINESS [None]
  - MYALGIA [None]
